FAERS Safety Report 25079793 (Version 1)
Quarter: 2025Q1

REPORT INFORMATION
  Report Type: Spontaneous
  Country: US (occurrence: None)
  Receive Date: 20250314
  Receipt Date: 20250314
  Transmission Date: 20250409
  Serious: Yes (Life-Threatening, Hospitalization)
  Sender: FDA-CTU
  Company Number: None

PATIENT
  Age: 16 Year
  Sex: Male
  Weight: 63 kg

DRUGS (2)
  1. KETAMINE [Suspect]
     Active Substance: KETAMINE
     Indication: Sedation
     Dates: start: 20250308, end: 20250308
  2. KETAMINE [Suspect]
     Active Substance: KETAMINE
     Indication: Pain

REACTIONS (6)
  - Adverse drug reaction [None]
  - Hallucination [None]
  - Syncope [None]
  - Dyspnoea [None]
  - Fall [None]
  - Head injury [None]

NARRATIVE: CASE EVENT DATE: 20250308
